FAERS Safety Report 8925648 (Version 1)
Quarter: 2012Q4

REPORT INFORMATION
  Report Type: 
  Country: US (occurrence: US)
  Receive Date: 20121126
  Receipt Date: 20121126
  Transmission Date: 20130627
  Serious: Yes (Hospitalization)
  Sender: FDA-Public Use
  Company Number: US-ELI_LILLY_AND_COMPANY-US201211003885

PATIENT
  Sex: Female
  Weight: 53.06 kg

DRUGS (7)
  1. CYMBALTA [Suspect]
     Indication: FIBROMYALGIA
     Dosage: UNK
     Dates: start: 2009, end: 2010
  2. CYMBALTA [Suspect]
     Dosage: UNK
     Dates: start: 201010
  3. NEURONTIN                               /SCH/ [Concomitant]
  4. OXYCODONE [Concomitant]
     Indication: PAIN
     Dosage: 15 mg, every 6 hrs
  5. CLONAZEPAM [Concomitant]
     Dosage: 1 DF, prn
  6. VICODIN [Concomitant]
     Indication: FIBROMYALGIA
     Dosage: UNK
     Dates: start: 1994
  7. SKELAXIN [Concomitant]
     Dosage: 800 mg, unknown
     Dates: start: 1998

REACTIONS (7)
  - Tachycardia [Unknown]
  - Panic attack [Unknown]
  - Amnesia [Unknown]
  - Confusional state [Unknown]
  - Hypoaesthesia [Not Recovered/Not Resolved]
  - Paraesthesia [Unknown]
  - Burning sensation [Recovered/Resolved]
